FAERS Safety Report 21119551 (Version 1)
Quarter: 2022Q3

REPORT INFORMATION
  Report Type: Spontaneous
  Country: US (occurrence: None)
  Receive Date: 20220721
  Receipt Date: 20220721
  Transmission Date: 20221027
  Serious: Yes (Hospitalization)
  Sender: FDA-Public Use
  Company Number: None

PATIENT
  Sex: Male
  Weight: 61.23 kg

DRUGS (7)
  1. KEYTRUDA [Suspect]
     Active Substance: PEMBROLIZUMAB
     Indication: Lung neoplasm malignant
     Dosage: OTHER FREQUENCY : EVERY 6WKS;?OTHER ROUTE : INFUSION;?
     Route: 042
     Dates: start: 202111
  2. KEYTRUDA [Suspect]
     Active Substance: PEMBROLIZUMAB
     Indication: Bronchial carcinoma
  3. GABAPENTIN [Concomitant]
     Active Substance: GABAPENTIN
  4. MEGESTROL [Concomitant]
     Active Substance: MEGESTROL
  5. MULTIVITAMINS/FLUORIDE [Concomitant]
  6. OXYCODONE [Concomitant]
  7. ACETAMINOPHEN [Concomitant]
     Active Substance: ACETAMINOPHEN

REACTIONS (1)
  - Rehabilitation therapy [None]
